FAERS Safety Report 17809933 (Version 1)
Quarter: 2020Q2

REPORT INFORMATION
  Report Type: Spontaneous
  Country: US (occurrence: US)
  Receive Date: 20200520
  Receipt Date: 20200520
  Transmission Date: 20200714
  Serious: No
  Sender: FDA-Public Use
  Company Number: US-ELI_LILLY_AND_COMPANY-US202005007721

PATIENT
  Sex: Female

DRUGS (1)
  1. EMGALITY [Suspect]
     Active Substance: GALCANEZUMAB-GNLM
     Indication: ACCIDENTAL EXPOSURE TO PRODUCT
     Dosage: 120 MG, SINGLE
     Route: 058

REACTIONS (2)
  - Accidental exposure to product [Unknown]
  - Dysgeusia [Unknown]
